FAERS Safety Report 13408740 (Version 1)
Quarter: 2017Q2

REPORT INFORMATION
  Report Type: Spontaneous
  Country: US (occurrence: US)
  Receive Date: 20170406
  Receipt Date: 20170406
  Transmission Date: 20170830
  Serious: Yes (Other)
  Sender: FDA-Public Use
  Company Number: US-JNJFOC-20161114772

PATIENT
  Sex: Male

DRUGS (4)
  1. RISPERDAL [Suspect]
     Active Substance: RISPERIDONE
     Indication: AUTISM SPECTRUM DISORDER
     Dosage: 0.25 MG, 0.5 MG AND 1 MG
     Route: 048
     Dates: start: 200802, end: 200806
  2. SEROQUEL [Suspect]
     Active Substance: QUETIAPINE FUMARATE
     Indication: AUTISM SPECTRUM DISORDER
     Dosage: 0.25 MG, 0.5 MG AND 1 MG
     Route: 048
     Dates: start: 200509
  3. SEROQUEL [Suspect]
     Active Substance: QUETIAPINE FUMARATE
     Indication: AUTISM SPECTRUM DISORDER
     Dosage: 25 MG, 50 MG, 100 MG, 200 MG AND 400 MG
     Route: 048
     Dates: start: 200812, end: 200902
  4. ZYPREXA [Suspect]
     Active Substance: OLANZAPINE
     Indication: AUTISM SPECTRUM DISORDER
     Dosage: 10 MG AND 20 MG
     Route: 048
     Dates: start: 200709, end: 200802

REACTIONS (4)
  - Gynaecomastia [Unknown]
  - Diabetes mellitus [Unknown]
  - Weight increased [Unknown]
  - Emotional disorder [Unknown]
